FAERS Safety Report 9193617 (Version 13)
Quarter: 2014Q3

REPORT INFORMATION
  Report Type: Spontaneous
  Country: US (occurrence: US)
  Receive Date: 20130327
  Receipt Date: 20140922
  Transmission Date: 20150326
  Serious: Yes (Hospitalization, Other)
  Sender: FDA-Public Use
  Company Number: US-JNJFOC-20120403250

PATIENT
  Age: 1 Year
  Sex: Female
  Weight: 10.43 kg

DRUGS (5)
  1. INFANTS TYLENOL [Suspect]
     Active Substance: ACETAMINOPHEN
     Indication: IMMUNISATION
     Route: 048
  2. TYLENOL [Suspect]
     Active Substance: ACETAMINOPHEN
     Indication: AGITATION
     Route: 048
  3. TYLENOL [Suspect]
     Active Substance: ACETAMINOPHEN
     Indication: PAIN
     Route: 048
  4. TYLENOL WITH CODEINE [Suspect]
     Active Substance: ACETAMINOPHEN\CODEINE PHOSPHATE
     Indication: PRODUCT USED FOR UNKNOWN INDICATION
     Route: 065
  5. INFANTS TYLENOL [Suspect]
     Active Substance: ACETAMINOPHEN
     Route: 048

REACTIONS (10)
  - Hepatic encephalopathy [Recovering/Resolving]
  - Hepatic failure [Recovering/Resolving]
  - Renal tubular acidosis [Unknown]
  - Hepatic cirrhosis [Recovering/Resolving]
  - Delirium [Unknown]
  - Otorrhoea [Unknown]
  - Dehydration [Recovered/Resolved]
  - Hepatitis acute [Recovering/Resolving]
  - Coagulopathy [Unknown]
  - Hypoglycaemia [Unknown]

NARRATIVE: CASE EVENT DATE: 2010
